FAERS Safety Report 19723579 (Version 2)
Quarter: 2021Q3

REPORT INFORMATION
  Report Type: Spontaneous
  Country: US (occurrence: US)
  Receive Date: 20210820
  Receipt Date: 20210830
  Transmission Date: 20211014
  Serious: No
  Sender: FDA-Public Use
  Company Number: US-AMGEN-USASP2021127158

PATIENT
  Age: 61 Year
  Sex: Female
  Weight: 70.3 kg

DRUGS (2)
  1. APREMILAST [Suspect]
     Active Substance: APREMILAST
     Indication: GRANULOMA ANNULARE
     Dosage: UNK UNK, BID
     Route: 048
     Dates: start: 20170823, end: 20180911
  2. APREMILAST [Suspect]
     Active Substance: APREMILAST
     Indication: OFF LABEL USE
     Dosage: UNK
     Route: 065
     Dates: start: 20180925

REACTIONS (2)
  - Drug effective for unapproved indication [Unknown]
  - Off label use [Unknown]
